FAERS Safety Report 9988271 (Version 3)
Quarter: 2015Q3

REPORT INFORMATION
  Report Type: Report from Study
  Country: SG (occurrence: SG)
  Receive Date: 20140310
  Receipt Date: 20150720
  Transmission Date: 20151125
  Serious: Yes (Death, Hospitalization, Other)
  Sender: FDA-Public Use
  Company Number: SG-ROCHE-1361601

PATIENT
  Age: 62 Year
  Sex: Female
  Weight: 63.6 kg

DRUGS (10)
  1. CISPLATIN. [Suspect]
     Active Substance: CISPLATIN
     Route: 042
     Dates: start: 20100423, end: 20100817
  2. NEUROBION [Concomitant]
     Active Substance: CYANOCOBALAMIN\PYRIDOXINE\THIAMINE
     Dosage: 1 TAB ONCE IN THE MORNING
     Route: 048
     Dates: start: 20101123, end: 20110123
  3. TS-1 [Suspect]
     Active Substance: GIMERACIL\OTERACIL\TEGAFUR
     Indication: HER-2 POSITIVE GASTRIC CANCER
     Dosage: 60MG REDUCED TO 50MG
     Route: 048
     Dates: start: 20100423, end: 20101109
  4. SANGOBION (SINGAPORE) [Concomitant]
     Route: 048
     Dates: start: 20101123, end: 20110123
  5. ASCORBIC ACID. [Concomitant]
     Active Substance: ASCORBIC ACID
     Dosage: 100MG ONCE IN THE MORNING
     Route: 048
     Dates: start: 20101123, end: 20110123
  6. TRASTUZUMAB [Suspect]
     Active Substance: TRASTUZUMAB
     Dosage: ON DAY 1 OF EACH CYCLE
     Route: 042
  7. POTASSIUM CHLORIDE. [Concomitant]
     Active Substance: POTASSIUM CHLORIDE
     Indication: HYPOKALAEMIA
     Dosage: ONCE IN THE MORNING
     Route: 048
     Dates: start: 20101123, end: 20101124
  8. TRASTUZUMAB [Suspect]
     Active Substance: TRASTUZUMAB
     Indication: HER-2 POSITIVE GASTRIC CANCER
     Dosage: LOADING DOSE
     Route: 042
     Dates: start: 20100423
  9. TRASTUZUMAB [Suspect]
     Active Substance: TRASTUZUMAB
     Dosage: 603MG REDUCED TO 391MG
     Route: 042
     Dates: start: 20100423, end: 20101026
  10. CISPLATIN. [Suspect]
     Active Substance: CISPLATIN
     Indication: HER-2 POSITIVE GASTRIC CANCER
     Dosage: ON DAY 1 OF EACH CYCLE
     Route: 042

REACTIONS (6)
  - Shock [Not Recovered/Not Resolved]
  - Neutropenic sepsis [Recovered/Resolved]
  - Hypokalaemia [Unknown]
  - Neutropenia [Unknown]
  - Hypoglycaemia [Unknown]
  - Disease progression [Fatal]

NARRATIVE: CASE EVENT DATE: 20101123
